FAERS Safety Report 13154570 (Version 1)
Quarter: 2017Q1

REPORT INFORMATION
  Report Type: Spontaneous
  Country: US (occurrence: US)
  Receive Date: 20170124
  Receipt Date: 20170124
  Transmission Date: 20170428
  Serious: Yes (Other)
  Sender: FDA-Public Use
  Company Number: None

PATIENT
  Age: 37 Year
  Sex: Male
  Weight: 94.5 kg

DRUGS (5)
  1. ATENOLOL. [Suspect]
     Active Substance: ATENOLOL
     Indication: TACHYCARDIA
     Dosage: ?          QUANTITY:1 TABLET(S);?
     Route: 048
  2. MULTIVITAMIN [Concomitant]
     Active Substance: VITAMINS
  3. PAXIL [Concomitant]
     Active Substance: PAROXETINE HYDROCHLORIDE
  4. ATIVAN [Concomitant]
     Active Substance: LORAZEPAM
  5. ATENOLOL. [Suspect]
     Active Substance: ATENOLOL
     Indication: ANXIETY
     Dosage: ?          QUANTITY:1 TABLET(S);?
     Route: 048

REACTIONS (1)
  - Gastrointestinal inflammation [None]

NARRATIVE: CASE EVENT DATE: 20170123
